FAERS Safety Report 7764139 (Version 5)
Quarter: 2013Q4

REPORT INFORMATION
  Report Type: Report from Study
  Country: BR (occurrence: BR)
  Receive Date: 20110118
  Receipt Date: 20131129
  Transmission Date: 20140711
  Serious: Yes (Death, Hospitalization)
  Sender: FDA-Public Use
  Company Number: PHHO2011BR00894

PATIENT
  Age: 44 Year
  Sex: Female

DRUGS (3)
  1. NEORAL [Suspect]
     Indication: RENAL TRANSPLANT
     Dosage: 150 MG, QD
     Route: 048
     Dates: start: 20090428, end: 20131009
  2. CELLCEPT [Concomitant]
     Indication: RENAL TRANSPLANT
     Dosage: 1000 MG
     Route: 048
     Dates: start: 20090424, end: 20121220
  3. PREDNISONE [Concomitant]
     Indication: RENAL TRANSPLANT
     Dosage: 5 MG
     Route: 048
     Dates: start: 20080611

REACTIONS (12)
  - Dehydration [Unknown]
  - Septic shock [Fatal]
  - Metastatic uterine cancer [Not Recovered/Not Resolved]
  - Nausea [Unknown]
  - Vomiting [Unknown]
  - Renal impairment [Unknown]
  - Rectosigmoid cancer [Unknown]
  - Anaemia [Unknown]
  - Thrombophlebitis superficial [Unknown]
  - Mass [Not Recovered/Not Resolved]
  - Wound evisceration [Recovered/Resolved with Sequelae]
  - Vaginal haemorrhage [Recovered/Resolved with Sequelae]
